FAERS Safety Report 15155000 (Version 1)
Quarter: 2018Q3

REPORT INFORMATION
  Report Type: Spontaneous
  Country: US (occurrence: US)
  Receive Date: 20180717
  Receipt Date: 20180717
  Transmission Date: 20181010
  Serious: No
  Sender: FDA-Public Use
  Company Number: US-SHIRE-US201825922

PATIENT
  Age: 58 Year
  Sex: Female
  Weight: 35 kg

DRUGS (1)
  1. GATTEX [Suspect]
     Active Substance: TEDUGLUTIDE\WATER
     Indication: PRODUCT USED FOR UNKNOWN INDICATION
     Dosage: 0.175 UNK, 1X/DAY:QD
     Route: 065
     Dates: end: 20180619

REACTIONS (3)
  - Weight increased [Unknown]
  - Swelling [Unknown]
  - Fluid overload [Unknown]

NARRATIVE: CASE EVENT DATE: 20180619
